FAERS Safety Report 10549207 (Version 2)
Quarter: 2014Q4

REPORT INFORMATION
  Report Type: Spontaneous
  Country: US (occurrence: US)
  Receive Date: 20141028
  Receipt Date: 20141208
  Transmission Date: 20150529
  Serious: Yes (Hospitalization)
  Sender: FDA-Public Use
  Company Number: PHEH2014US021262

PATIENT
  Sex: Female

DRUGS (6)
  1. LASIX [Concomitant]
     Active Substance: FUROSEMIDE
     Indication: OEDEMA
     Route: 065
  2. RISPERIDONE. [Concomitant]
     Active Substance: RISPERIDONE
     Indication: DELIRIUM
     Route: 065
  3. EXELON PATCH [Suspect]
     Active Substance: RIVASTIGMINE
     Indication: DEMENTIA
     Dosage: 9.5 MG, UNK
     Route: 062
  4. ASPIRIN. [Concomitant]
     Active Substance: ASPIRIN
     Indication: PRODUCT USED FOR UNKNOWN INDICATION
     Dosage: UNK (LOW DOSE)
     Route: 065
  5. EXELON PATCH [Suspect]
     Active Substance: RIVASTIGMINE
     Indication: DEMENTIA ALZHEIMER^S TYPE
     Route: 062
  6. OMEPRAZOLE. [Concomitant]
     Active Substance: OMEPRAZOLE
     Indication: GASTRIC DISORDER
     Route: 065

REACTIONS (4)
  - Speech disorder [Unknown]
  - Pneumonia [Unknown]
  - Decreased appetite [Unknown]
  - Malaise [Unknown]
